FAERS Safety Report 10786277 (Version 1)
Quarter: 2015Q1

REPORT INFORMATION
  Report Type: Spontaneous
  Country: US (occurrence: None)
  Receive Date: 20150210
  Receipt Date: 20150210
  Transmission Date: 20150721
  Serious: No
  Sender: FDA-Public Use
  Company Number: None

PATIENT
  Age: 47 Year
  Sex: Female
  Weight: 50.8 kg

DRUGS (2)
  1. BOTULINUM TOXIN TYPE A [Suspect]
     Active Substance: BOTULINUM TOXIN TYPE A
     Indication: OCCIPITAL NEURALGIA
     Dosage: 200 UNITS EVERY 3 MONTHS, HEAD/NECK ONLY INJ. 1X WILL NOT DO AGAIN
     Dates: start: 20141226
  2. BOTULINUM TOXIN TYPE A [Suspect]
     Active Substance: BOTULINUM TOXIN TYPE A
     Indication: DYSTONIA
     Dosage: 200 UNITS EVERY 3 MONTHS, HEAD/NECK ONLY INJ. 1X WILL NOT DO AGAIN
     Dates: start: 20141226

REACTIONS (12)
  - Dysphagia [None]
  - Nausea [None]
  - Vomiting [None]
  - Choking [None]
  - Muscle spasms [None]
  - Weight decreased [None]
  - Condition aggravated [None]
  - Activities of daily living impaired [None]
  - Speech disorder [None]
  - Eye pain [None]
  - Dysphonia [None]
  - Drug ineffective [None]

NARRATIVE: CASE EVENT DATE: 20141226
